FAERS Safety Report 12904224 (Version 2)
Quarter: 2016Q4

REPORT INFORMATION
  Report Type: Report from Study
  Country: None (occurrence: GR)
  Receive Date: 20161102
  Receipt Date: 20161109
  Transmission Date: 20170207
  Serious: Yes (Death, Other)
  Sender: FDA-Public Use
  Company Number: GR-ABBVIE-16P-066-1768550-00

PATIENT
  Age: 79 Year
  Sex: Male

DRUGS (1)
  1. DUODOPA [Suspect]
     Active Substance: CARBIDOPA\LEVODOPA
     Indication: PARKINSON^S DISEASE
     Dosage: MORNING DOSE: 19 ML; CONTINUOUS RATE: 7.5 ML/H; EXTRA DOSE: 5.5 ML
     Route: 050
     Dates: start: 20140529

REACTIONS (2)
  - Respiratory tract infection [Fatal]
  - Dysphagia [Not Recovered/Not Resolved]
